FAERS Safety Report 22596351 (Version 3)
Quarter: 2024Q1

REPORT INFORMATION
  Report Type: Spontaneous
  Country: US (occurrence: US)
  Receive Date: 20230613
  Receipt Date: 20240228
  Transmission Date: 20240410
  Serious: Yes (Other)
  Sender: FDA-Public Use
  Company Number: US-PFIZER INC-PV202300102156

PATIENT
  Age: 11 Year
  Sex: Female

DRUGS (1)
  1. OXBRYTA [Suspect]
     Active Substance: VOXELOTOR
     Dosage: 900 MG, 1X/DAY (300 MG, 3 TABLETS FOR ORAL SUSPENSION ONCE DAILY)
     Route: 048

REACTIONS (2)
  - Sickle cell anaemia with crisis [Unknown]
  - Intentional product misuse [Unknown]
